FAERS Safety Report 5207212-8 (Version None)
Quarter: 2007Q1

REPORT INFORMATION
  Report Type: 
  Country: None (occurrence: None)
  Receive Date: 20070112
  Receipt Date: 20070104
  Transmission Date: 20070707
  Serious: Yes (Other)
  Sender: FDA-Public Use
  Company Number: FR-GLAXOSMITHKLINE-B0453625A

PATIENT
  Age: 25 Year
  Sex: Male

DRUGS (1)
  1. SERETIDE DISKUS [Suspect]
     Indication: ASTHMA
     Dosage: 1PUFF PER DAY
     Route: 055
     Dates: start: 20050601, end: 20061101

REACTIONS (3)
  - HEPATITIS [None]
  - HEPATOCELLULAR DAMAGE [None]
  - TRANSAMINASES INCREASED [None]
